FAERS Safety Report 8018687-3 (Version None)
Quarter: 2012Q1

REPORT INFORMATION
  Report Type: 
  Country: None (occurrence: None)
  Receive Date: 20120103
  Receipt Date: 20120103
  Transmission Date: 20120608
  Serious: Yes (Other)
  Sender: FDA-Public Use
  Company Number: None

PATIENT
  Age: 71 Year
  Sex: Male
  Weight: 88.45 kg

DRUGS (1)
  1. MIRALAX [Suspect]
     Indication: CONSTIPATION
     Dosage: 17G
     Route: 048
     Dates: start: 20111208, end: 20111230

REACTIONS (2)
  - DRUG HYPERSENSITIVITY [None]
  - PRODUCT LABEL ISSUE [None]
